FAERS Safety Report 10016779 (Version 1)
Quarter: 2014Q1

REPORT INFORMATION
  Report Type: Spontaneous
  Country: PL (occurrence: PL)
  Receive Date: 20140318
  Receipt Date: 20140318
  Transmission Date: 20141002
  Serious: Yes (Death, Other)
  Sender: FDA-Public Use
  Company Number: PHHY2014PL031751

PATIENT
  Age: 71 Year
  Sex: Female

DRUGS (3)
  1. EVEROLIMUS [Suspect]
     Indication: RENAL CELL CARCINOMA
     Dosage: 10 MG, UNK
     Route: 048
     Dates: start: 20120614
  2. EVEROLIMUS [Suspect]
     Dosage: 5 UNK, UNK
     Route: 048
  3. METFORMIN [Concomitant]

REACTIONS (5)
  - Circulatory collapse [Fatal]
  - Respiratory failure [Fatal]
  - Malignant neoplasm progression [Fatal]
  - Pneumonia bacterial [Unknown]
  - Blood pressure increased [Unknown]
